FAERS Safety Report 5077567-6 (Version None)
Quarter: 2006Q3

REPORT INFORMATION
  Report Type: 
  Country: None (occurrence: None)
  Receive Date: 20060807
  Receipt Date: 20060724
  Transmission Date: 20061208
  Serious: Yes (Hospitalization)
  Sender: FDA-Public Use
  Company Number: US200607004323

PATIENT
  Age: 75 Year
  Sex: Male

DRUGS (5)
  1. CIALIS [Suspect]
     Indication: ERECTILE DYSFUNCTION
     Dosage: 20 MG
     Dates: start: 20050101
  2. DIGOXIN [Concomitant]
  3. VERAPAMIL [Concomitant]
  4. PREDNISONE TAB [Concomitant]
  5. WARFARIN SODIUM [Concomitant]

REACTIONS (5)
  - CARDIAC OPERATION [None]
  - DRUG DISPENSING ERROR [None]
  - ERECTILE DYSFUNCTION [None]
  - LUNG OPERATION [None]
  - THERAPEUTIC RESPONSE DECREASED [None]
